FAERS Safety Report 16509252 (Version 1)
Quarter: 2019Q3

REPORT INFORMATION
  Report Type: Spontaneous
  Country: US (occurrence: US)
  Receive Date: 20190701
  Receipt Date: 20190701
  Transmission Date: 20191004
  Serious: Yes (Death)
  Sender: FDA-Public Use
  Company Number: None

PATIENT
  Age: 82 Year
  Sex: Male

DRUGS (1)
  1. ELIQUIS [Suspect]
     Active Substance: APIXABAN
     Indication: ATRIAL FIBRILLATION

REACTIONS (7)
  - Vomiting [None]
  - Gastrointestinal haemorrhage [None]
  - Hydrocephalus [None]
  - Cerebellar haemorrhage [None]
  - Nausea [None]
  - Brain oedema [None]
  - Hypertension [None]

NARRATIVE: CASE EVENT DATE: 20190112
